FAERS Safety Report 23628518 (Version 1)
Quarter: 2024Q1

REPORT INFORMATION
  Report Type: Spontaneous
  Country: US (occurrence: US)
  Receive Date: 20240313
  Receipt Date: 20240313
  Transmission Date: 20240409
  Serious: No
  Sender: FDA-Public Use
  Company Number: US-SA-SAC20240311000527

PATIENT
  Age: 52 Year
  Sex: Male

DRUGS (10)
  1. DUPIXENT [Suspect]
     Active Substance: DUPILUMAB
     Indication: Asthma
     Dosage: 300 MG, QOW
     Route: 058
     Dates: start: 20191009
  2. ATORVASTATIN CALCIUM [Concomitant]
     Active Substance: ATORVASTATIN CALCIUM
  3. TUMS [Concomitant]
     Active Substance: CALCIUM CARBONATE
  4. TYLENOL [Concomitant]
     Active Substance: ACETAMINOPHEN
  5. FAMOTIDINE [Concomitant]
     Active Substance: FAMOTIDINE
  6. BUDESONIDE [Concomitant]
     Active Substance: BUDESONIDE
  7. SINGULAIR [Concomitant]
     Active Substance: MONTELUKAST SODIUM
  8. BUPROPION [Concomitant]
     Active Substance: BUPROPION
  9. ZYRTEC-D ALLERGY AND CONGESTION [Concomitant]
     Active Substance: CETIRIZINE HYDROCHLORIDE\PSEUDOEPHEDRINE HYDROCHLORIDE
  10. PROAIR HFA [Concomitant]
     Active Substance: ALBUTEROL SULFATE

REACTIONS (3)
  - Headache [Not Recovered/Not Resolved]
  - Nasal congestion [Unknown]
  - Arthralgia [Not Recovered/Not Resolved]

NARRATIVE: CASE EVENT DATE: 20231001
